FAERS Safety Report 4802240-6 (Version None)
Quarter: 2005Q4

REPORT INFORMATION
  Report Type: 
  Country: None (occurrence: None)
  Receive Date: 20051012
  Receipt Date: 20050914
  Transmission Date: 20060501
  Serious: Yes (Hospitalization)
  Sender: FDA-Public Use
  Company Number: CFX20050020

PATIENT
  Age: 43 Year
  Sex: Female

DRUGS (2)
  1. CIPROFLOXACIN [Suspect]
     Indication: ARTHROPOD BITE
     Dosage: PO
     Route: 048
     Dates: start: 20050101, end: 20050101
  2. CEPHALEXIN [Suspect]
     Indication: ARTHROPOD BITE
     Dosage: PO
     Route: 048
     Dates: start: 20050101, end: 20050101

REACTIONS (5)
  - CHOREA [None]
  - CONFUSIONAL STATE [None]
  - DYSTONIA [None]
  - GRAND MAL CONVULSION [None]
  - NEUROTOXICITY [None]
